FAERS Safety Report 12821724 (Version 2)
Quarter: 2016Q4

REPORT INFORMATION
  Report Type: Report from Study
  Country: US (occurrence: US)
  Receive Date: 20161007
  Receipt Date: 20161116
  Transmission Date: 20170207
  Serious: Yes (Death, Other)
  Sender: FDA-Public Use
  Company Number: US-GILEAD-2016-0237074

PATIENT
  Age: 66 Year
  Sex: Male

DRUGS (16)
  1. LEVOFLOXACIN. [Concomitant]
     Active Substance: LEVOFLOXACIN
  2. ASPIRIN                            /00002701/ [Concomitant]
     Active Substance: ASPIRIN
  3. DOXAZOSIN [Concomitant]
     Active Substance: DOXAZOSIN\DOXAZOSIN MESYLATE
  4. CALCIUM ACETATE. [Concomitant]
     Active Substance: CALCIUM ACETATE
  5. HYDRALAZINE [Concomitant]
     Active Substance: HYDRALAZINE HYDROCHLORIDE
  6. ULORIC [Concomitant]
     Active Substance: FEBUXOSTAT
  7. TYLENOL [Concomitant]
     Active Substance: ACETAMINOPHEN
  8. PRAVASTATIN. [Concomitant]
     Active Substance: PRAVASTATIN
  9. CILOSTAZOL. [Concomitant]
     Active Substance: CILOSTAZOL
  10. AMBRISENTAN [Suspect]
     Active Substance: AMBRISENTAN
     Indication: PULMONARY HYPERTENSION
     Dosage: 10 MG, QD
     Route: 065
     Dates: start: 20120804
  11. LEVOTHYROXINE. [Concomitant]
     Active Substance: LEVOTHYROXINE
  12. HYDROCODONE [Concomitant]
     Active Substance: HYDROCODONE
  13. JANTOVEN [Concomitant]
     Active Substance: WARFARIN SODIUM
  14. SERTRALINE [Concomitant]
     Active Substance: SERTRALINE HYDROCHLORIDE
  15. METOPROLOL SUCCINATE. [Concomitant]
     Active Substance: METOPROLOL SUCCINATE
  16. HUMULIN NOS [Concomitant]
     Active Substance: INSULIN HUMAN

REACTIONS (1)
  - Death [Fatal]

NARRATIVE: CASE EVENT DATE: 20160911
